FAERS Safety Report 6021618-9 (Version None)
Quarter: 2008Q4

REPORT INFORMATION
  Report Type: 
  Country: None (occurrence: None)
  Receive Date: 20081229
  Receipt Date: 20081218
  Transmission Date: 20090506
  Serious: Yes (Hospitalization)
  Sender: FDA-Public Use
  Company Number: US-SANOFI-SYNTHELABO-F01200801930

PATIENT

DRUGS (4)
  1. BEVACIZUMAB [Suspect]
     Route: 041
     Dates: start: 20071218, end: 20071218
  2. LEUCOVORIN CALCIUM [Suspect]
     Dosage: UNK
     Route: 041
  3. FLUOROURACIL [Suspect]
     Dosage: UNK
     Route: 042
  4. OXALIPLATIN [Suspect]
     Indication: RECTAL CANCER
     Route: 041
     Dates: start: 20071218, end: 20071218

REACTIONS (1)
  - SINUSITIS [None]
